FAERS Safety Report 9596772 (Version 2)
Quarter: 2013Q4

REPORT INFORMATION
  Report Type: Spontaneous
  Country: JP (occurrence: JP)
  Receive Date: 20131004
  Receipt Date: 20131210
  Transmission Date: 20140711
  Serious: No
  Sender: FDA-Public Use
  Company Number: JP-B.I. PHARMACEUTICALS,INC./RIDGEFIELD-2013-BI-30780NB

PATIENT
  Age: 64 Year
  Sex: Female

DRUGS (3)
  1. TRAZENTA [Suspect]
     Dosage: 5 MG
     Route: 048
     Dates: start: 20121010, end: 20130930
  2. BAYASPIRIN [Suspect]
     Route: 048
     Dates: start: 20130104
  3. LANSOPRAZOLE [Suspect]
     Route: 048
     Dates: start: 20130104

REACTIONS (1)
  - Erythema multiforme [Recovered/Resolved]
